FAERS Safety Report 17581422 (Version 2)
Quarter: 2020Q2

REPORT INFORMATION
  Report Type: Spontaneous
  Country: GB (occurrence: GB)
  Receive Date: 20200325
  Receipt Date: 20200501
  Transmission Date: 20200713
  Serious: Yes (Hospitalization, Other)
  Sender: FDA-Public Use
  Company Number: NVSC2020GB079933

PATIENT
  Age: 64 Year
  Sex: Male
  Weight: 83 kg

DRUGS (1)
  1. LEVOFLOXACIN. [Suspect]
     Active Substance: LEVOFLOXACIN
     Indication: ARTHRITIS INFECTIVE
     Dosage: 1000 MG, QD
     Route: 048
     Dates: start: 20191222, end: 20191223

REACTIONS (8)
  - Hyperhidrosis [Unknown]
  - Dyspnoea [Unknown]
  - Restlessness [Unknown]
  - Agitation [Recovered/Resolved]
  - Anxiety [Recovered/Resolved]
  - Dyskinesia [Recovered/Resolved]
  - Cold sweat [Recovered/Resolved]
  - Seizure [Recovered/Resolved]

NARRATIVE: CASE EVENT DATE: 20191222
